FAERS Safety Report 12137863 (Version 1)
Quarter: 2016Q1

REPORT INFORMATION
  Report Type: Report from Study
  Country: CN (occurrence: CN)
  Receive Date: 20160302
  Receipt Date: 20160302
  Transmission Date: 20160526
  Serious: Yes (Hospitalization)
  Sender: FDA-Public Use
  Company Number: CN-ASTELLAS-2016US004446

PATIENT
  Age: 28 Year
  Sex: Female
  Weight: 59 kg

DRUGS (15)
  1. PREDNISONE. [Suspect]
     Active Substance: PREDNISONE
     Route: 048
     Dates: start: 20151222, end: 20160104
  2. METOPROLOL SUCCINATE. [Concomitant]
     Active Substance: METOPROLOL SUCCINATE
     Indication: HYPERTENSION
     Route: 048
     Dates: start: 20151208
  3. PREDNISONE. [Suspect]
     Active Substance: PREDNISONE
     Route: 048
     Dates: start: 20160217
  4. CALCIUM CARBONATE WITH D3 [Concomitant]
     Indication: MINERAL SUPPLEMENTATION
     Dosage: 500 MG DAILY DOSE, TWICE DAILY
     Route: 048
     Dates: start: 20151103
  5. PREDNISONE. [Suspect]
     Active Substance: PREDNISONE
     Indication: LUPUS NEPHRITIS
     Route: 048
     Dates: start: 20151124, end: 20151221
  6. PREDNISONE. [Suspect]
     Active Substance: PREDNISONE
     Route: 048
     Dates: start: 20160203, end: 20160216
  7. QIANGLIPIPALU [Concomitant]
     Indication: COUGH
     Route: 048
     Dates: start: 20160131, end: 20160213
  8. TACROLIMUS. [Suspect]
     Active Substance: TACROLIMUS
     Dosage: 4.0 MG DAILY DOSE, TWICE DAILY
     Route: 048
     Dates: start: 20160214
  9. PREDNISONE. [Suspect]
     Active Substance: PREDNISONE
     Route: 048
     Dates: start: 20160105, end: 20160119
  10. VALSARTAN. [Concomitant]
     Active Substance: VALSARTAN
     Indication: URINE ANALYSIS ABNORMAL
     Dosage: 160 MG ONCE DAILY, TWICE DAILY
     Route: 048
     Dates: start: 201310
  11. PLAQUENIL [Concomitant]
     Active Substance: HYDROXYCHLOROQUINE SULFATE
     Indication: LUPUS NEPHRITIS
     Route: 048
     Dates: start: 201410
  12. ALFACALCIDOL [Concomitant]
     Active Substance: ALFACALCIDOL
     Indication: OSTEOPOROSIS PROPHYLAXIS
     Dosage: 0.25 ?G, AT BEDTIME (EVERY NIGHT)
     Route: 048
     Dates: start: 20151109
  13. TACROLIMUS. [Suspect]
     Active Substance: TACROLIMUS
     Indication: LUPUS NEPHRITIS
     Dosage: 4.0 MG DAILY DOSE, TWICE DAILY
     Route: 048
     Dates: start: 20151124, end: 20160202
  14. PREDNISONE. [Suspect]
     Active Substance: PREDNISONE
     Route: 048
     Dates: start: 20160120, end: 20160202
  15. COMPOUND PARACETAMOL AND SULFOGAIACOL [Concomitant]
     Indication: COUGH
     Dosage: 30 ML DAILY DOSE, THRICE DAILY
     Route: 048
     Dates: start: 20160131, end: 20160213

REACTIONS (1)
  - Hypoglycaemia [Recovered/Resolved]

NARRATIVE: CASE EVENT DATE: 20160203
